FAERS Safety Report 5179458-9 (Version None)
Quarter: 2006Q4

REPORT INFORMATION
  Report Type: 
  Country: None (occurrence: None)
  Receive Date: 20061219
  Receipt Date: 20061213
  Transmission Date: 20070319
  Serious: Yes (Life-Threatening, Hospitalization)
  Sender: FDA-Public Use
  Company Number: AU-BRISTOL-MYERS SQUIBB COMPANY-13611603

PATIENT

DRUGS (1)
  1. BLENOXANE [Suspect]

REACTIONS (1)
  - RESPIRATORY DISORDER [None]
